FAERS Safety Report 8417180-3 (Version None)
Quarter: 2012Q2

REPORT INFORMATION
  Report Type: 
  Country: None (occurrence: None)
  Receive Date: 20120606
  Receipt Date: 20120601
  Transmission Date: 20120825
  Serious: Yes (Other)
  Sender: FDA-Public Use
  Company Number: US-PFIZER INC-2012123787

PATIENT
  Sex: Female

DRUGS (1)
  1. VISTARIL [Suspect]

REACTIONS (3)
  - LOSS OF CONSCIOUSNESS [None]
  - MIGRAINE [None]
  - ROAD TRAFFIC ACCIDENT [None]
